FAERS Safety Report 7256322-2 (Version None)
Quarter: 2011Q1

REPORT INFORMATION
  Report Type: 
  Country: None (occurrence: None)
  Receive Date: 20110129
  Receipt Date: 20100511
  Transmission Date: 20110831
  Serious: No
  Sender: FDA-Public Use
  Company Number: US-ABBOTT-10P-163-0639492-00

PATIENT
  Sex: Male
  Weight: 126.21 kg

DRUGS (6)
  1. HUMIRA [Suspect]
     Indication: PSORIASIS
     Route: 058
     Dates: start: 20100101, end: 20100326
  2. DIOVAN [Concomitant]
     Indication: BLOOD PRESSURE
  3. DOXAZOSIN [Concomitant]
     Indication: PRODUCT USED FOR UNKNOWN INDICATION
  4. METFORMIN [Concomitant]
     Indication: DIABETES MELLITUS
  5. NEXIUM [Concomitant]
     Indication: PRODUCT USED FOR UNKNOWN INDICATION
  6. NODOLA [Concomitant]
     Indication: OESOPHAGEAL DISORDER

REACTIONS (3)
  - ARTHRALGIA [None]
  - DYSPNOEA [None]
  - PAIN [None]
